FAERS Safety Report 15073176 (Version 1)
Quarter: 2018Q3

REPORT INFORMATION
  Report Type: Spontaneous
  Country: US (occurrence: US)
  Receive Date: 20180627
  Receipt Date: 20180627
  Transmission Date: 20181010
  Serious: No
  Sender: FDA-Public Use
  Company Number: US-AUROBINDO-AUR-APU-2018-021709

PATIENT

DRUGS (1)
  1. ZOLEDRONIC ACID INJECTION 5MG/100ML (0.5MG/ML), 100ML BOTTLE [Suspect]
     Active Substance: ZOLEDRONIC ACID
     Indication: OSTEOPOROSIS
     Dosage: UNK
     Route: 065
     Dates: start: 20180428

REACTIONS (4)
  - Pain in extremity [Not Recovered/Not Resolved]
  - Malaise [Unknown]
  - Influenza like illness [Unknown]
  - Peripheral swelling [Not Recovered/Not Resolved]

NARRATIVE: CASE EVENT DATE: 20180430
